FAERS Safety Report 5885398-X (Version None)
Quarter: 2008Q3

REPORT INFORMATION
  Report Type: 
  Country: None (occurrence: None)
  Receive Date: 20080916
  Receipt Date: 20080908
  Transmission Date: 20090109
  Serious: Yes (Other)
  Sender: FDA-Public Use
  Company Number: US-PURDUE-USA_2008_0034151

PATIENT
  Age: 56 Year
  Sex: Female
  Weight: 78 kg

DRUGS (7)
  1. OXYCONTIN [Suspect]
     Indication: PAIN
     Dosage: 80 MG, TID
     Route: 048
     Dates: start: 20010101
  2. NEXIUM [Concomitant]
     Dosage: UNK, UNK
     Dates: start: 20080601
  3. OXYCODONE HCL [Suspect]
     Indication: DRUG USE FOR UNKNOWN INDICATION
  4. LYRICA [Concomitant]
  5. NORVASC [Concomitant]
  6. CRESTOR [Concomitant]
  7. VALTREX [Concomitant]

REACTIONS (7)
  - DRUG EFFECT DECREASED [None]
  - DRUG TOLERANCE [None]
  - FEMUR FRACTURE [None]
  - INADEQUATE ANALGESIA [None]
  - PAIN [None]
  - STOMACH DISCOMFORT [None]
  - VOMITING [None]
